FAERS Safety Report 5262656-3 (Version None)
Quarter: 2007Q1

REPORT INFORMATION
  Report Type: 
  Country: None (occurrence: None)
  Receive Date: 20070307
  Receipt Date: 20070220
  Transmission Date: 20070707
  Serious: Yes (Other)
  Sender: FDA-Public Use
  Company Number: 2007AP000237

PATIENT
  Sex: Female

DRUGS (3)
  1. PAROXETINE HCL [Suspect]
     Dosage: SEE IMAGE
     Route: 048
     Dates: start: 20000101, end: 20031101
  2. PAROXETINE HCL [Suspect]
     Dosage: SEE IMAGE
     Route: 048
     Dates: start: 20031101
  3. CITALOPRAM HYDROBROMIDE [Concomitant]

REACTIONS (12)
  - AGITATION [None]
  - ANGER [None]
  - APATHY [None]
  - DISTURBANCE IN ATTENTION [None]
  - DRUG WITHDRAWAL SYNDROME [None]
  - HALLUCINATION, VISUAL [None]
  - HEADACHE [None]
  - LIBIDO DECREASED [None]
  - MOOD SWINGS [None]
  - PANIC ATTACK [None]
  - PARANOIA [None]
  - TEARFULNESS [None]
